FAERS Safety Report 5902829-7 (Version None)
Quarter: 2008Q3

REPORT INFORMATION
  Report Type: 
  Country: None (occurrence: None)
  Receive Date: 20080929
  Receipt Date: 20080929
  Transmission Date: 20090109
  Serious: No
  Sender: FDA-Public Use
  Company Number: None

PATIENT
  Sex: Male
  Weight: 102.0593 kg

DRUGS (2)
  1. CEFUROZIME AXETIL [Suspect]
     Indication: ANIMAL BITE
     Dosage: 500 MG TAAPO 1 TWICE PER DAY
     Route: 048
     Dates: start: 20080922, end: 20080927
  2. CEFUROZIME AXETIL [Suspect]
     Indication: INFECTION
     Dosage: 500 MG TAAPO 1 TWICE PER DAY
     Route: 048
     Dates: start: 20080922, end: 20080927

REACTIONS (1)
  - FACIAL PALSY [None]
